FAERS Safety Report 5657085-4 (Version None)
Quarter: 2008Q1

REPORT INFORMATION
  Report Type: 
  Country: None (occurrence: None)
  Receive Date: 20080310
  Receipt Date: 20080228
  Transmission Date: 20080703
  Serious: Yes (Other)
  Sender: FDA-Public Use
  Company Number: US-JNJFOC-20071000772

PATIENT
  Sex: Female
  Weight: 54.43 kg

DRUGS (5)
  1. DURAGESIC-100 [Suspect]
     Route: 062
  2. DURAGESIC-100 [Suspect]
     Indication: PAIN
     Route: 062
  3. TRAMADOL HCL [Concomitant]
     Indication: PAIN
     Route: 048
  4. PRIMIDONE [Concomitant]
     Indication: TREMOR
     Route: 048
  5. GABAPENTIN [Concomitant]
     Indication: NEURALGIA
     Route: 048

REACTIONS (7)
  - ARTHRITIS [None]
  - DRUG ADMINISTERED AT INAPPROPRIATE SITE [None]
  - FALL [None]
  - INAPPROPRIATE SCHEDULE OF DRUG ADMINISTRATION [None]
  - INFLAMMATION [None]
  - JOINT INJURY [None]
  - LIMB INJURY [None]
